FAERS Safety Report 6939590-3 (Version None)
Quarter: 2010Q3

REPORT INFORMATION
  Report Type: 
  Country: None (occurrence: None)
  Receive Date: 20100820
  Receipt Date: 20100805
  Transmission Date: 20110219
  Serious: Yes (Hospitalization)
  Sender: FDA-Public Use
  Company Number: 2010003304

PATIENT
  Age: 74 Year
  Sex: Male
  Weight: 59.5 kg

DRUGS (15)
  1. EROLTINIB (ERLOTINIB) (TABLET) (ERLOTINIB) [Suspect]
     Indication: LUNG ADENOCARCINOMA
     Dosage: (100 MG, QD), ORAL (100 MG, QD, ORAL), (100MG, QD ORAL), (100 QD ORAL)
     Route: 048
     Dates: start: 20090911, end: 20090914
  2. EROLTINIB (ERLOTINIB) (TABLET) (ERLOTINIB) [Suspect]
     Indication: LUNG ADENOCARCINOMA
     Dosage: (100 MG, QD), ORAL (100 MG, QD, ORAL), (100MG, QD ORAL), (100 QD ORAL)
     Route: 048
     Dates: start: 20090924, end: 20100331
  3. EROLTINIB (ERLOTINIB) (TABLET) (ERLOTINIB) [Suspect]
     Indication: LUNG ADENOCARCINOMA
     Dosage: (100 MG, QD), ORAL (100 MG, QD, ORAL), (100MG, QD ORAL), (100 QD ORAL)
     Route: 048
     Dates: start: 20081215, end: 20100611
  4. EROLTINIB (ERLOTINIB) (TABLET) (ERLOTINIB) [Suspect]
     Indication: LUNG ADENOCARCINOMA
     Dosage: (100 MG, QD), ORAL (100 MG, QD, ORAL), (100MG, QD ORAL), (100 QD ORAL)
     Route: 048
     Dates: start: 20100401, end: 20100611
  5. BAYASPRIN (ACETYLSALICYLIC ACID) [Concomitant]
  6. CRESTOR [Concomitant]
  7. AMLODIPINE BESYLATE [Concomitant]
  8. AMARYL [Concomitant]
  9. ACTOS [Concomitant]
  10. RABEPRAZOLE SODIUM [Concomitant]
  11. BASEN (VOGLIBOSE) [Concomitant]
  12. GLYSENNID [Concomitant]
  13. TRANCOLON (MEPENZOLATE BROMIDE) [Concomitant]
  14. FESIN (SACCHARATED IRON OXIDE) [Concomitant]
  15. FERROMIA (FERROUS CITRATE) [Concomitant]

REACTIONS (10)
  - DIARRHOEA [None]
  - DRY SKIN [None]
  - GASTRIC CANCER [None]
  - LUNG ADENOCARCINOMA [None]
  - MALIGNANT NEOPLASM PROGRESSION [None]
  - ONYCHOCLASIS [None]
  - PARONYCHIA [None]
  - PRURITUS [None]
  - RASH [None]
  - STOMATITIS [None]
